FAERS Safety Report 7843199-7 (Version None)
Quarter: 2011Q4

REPORT INFORMATION
  Report Type: 
  Country: None (occurrence: None)
  Receive Date: 20111025
  Receipt Date: 20111020
  Transmission Date: 20120403
  Serious: No
  Sender: FDA-Public Use
  Company Number: US-PFIZER INC-2011225060

PATIENT
  Sex: Female
  Weight: 65.3 kg

DRUGS (2)
  1. ADVIL PM [Suspect]
     Dosage: UNK
  2. ADVIL PM [Suspect]
     Indication: SLEEP DISORDER
     Dosage: UNK, DAILY
     Dates: start: 20110919

REACTIONS (1)
  - DRUG INEFFECTIVE [None]
